FAERS Safety Report 4668014-4 (Version None)
Quarter: 2005Q2

REPORT INFORMATION
  Report Type: 
  Country: None (occurrence: None)
  Receive Date: 20050520
  Receipt Date: 20011106
  Transmission Date: 20051028
  Serious: Yes (Hospitalization, Other)
  Sender: FDA-Public Use
  Company Number: JP-ABBOTT-01P-087-0112985-00

PATIENT
  Sex: Male

DRUGS (25)
  1. NORVIR [Suspect]
     Indication: HIV INFECTION
     Route: 048
     Dates: start: 19991101, end: 20020228
  2. KALETRA [Suspect]
     Indication: HIV INFECTION
     Route: 048
     Dates: start: 20020401
  3. ABACAVIR SULFATE [Suspect]
     Indication: HIV INFECTION
     Route: 048
     Dates: start: 19991101, end: 20000103
  4. SAQUINAVIR [Suspect]
     Indication: HIV INFECTION
     Route: 048
     Dates: start: 19991221, end: 20020228
  5. AMPRENAVIR [Suspect]
     Indication: HIV INFECTION
     Route: 048
     Dates: start: 19991101, end: 19991220
  6. NEVIRAPINE [Suspect]
     Indication: HIV INFECTION
     Route: 048
     Dates: start: 19991221, end: 19991230
  7. EFAVIRENZ [Suspect]
     Indication: HIV INFECTION
     Route: 048
     Dates: start: 19991101, end: 19991220
  8. EFAVIRENZ [Suspect]
     Route: 048
     Dates: start: 20020401
  9. LAMIVUDINE [Suspect]
     Indication: HIV INFECTION
     Route: 048
     Dates: start: 19991221, end: 20020228
  10. STAVUDINE [Suspect]
     Indication: HIV INFECTION
     Route: 048
     Dates: start: 19991221, end: 20020228
  11. TENOFOVIR [Suspect]
     Indication: HIV INFECTION
     Route: 048
     Dates: start: 20020401
  12. PENTAMIDINE ISETHIONATE [Concomitant]
     Indication: INFECTION PROPHYLAXIS
     Dates: start: 19991101
  13. 5 % GLUCOSE [Concomitant]
     Indication: INFECTION PROPHYLAXIS
     Dates: start: 19991101
  14. 5 % GLUCOSE [Concomitant]
     Route: 042
     Dates: start: 20020401, end: 20020805
  15. OCTOCOG ALFA [Concomitant]
     Indication: FACTOR VIII DEFICIENCY
     Dates: start: 19991101, end: 19991130
  16. OCTOCOG ALFA [Concomitant]
     Dosage: 2000 - 4000 UNIT
     Dates: start: 19991201
  17. OCTOCOG ALFA [Concomitant]
     Dosage: 1000-2000 U
     Route: 042
     Dates: start: 20030626
  18. INSULIN HUMAN (GENTICAL RECOMBINATION) [Concomitant]
     Indication: DIABETES MELLITUS
     Route: 050
     Dates: start: 20020416, end: 20020501
  19. INSULIN HUMAN (GENTICAL RECOMBINATION) [Concomitant]
     Route: 050
     Dates: start: 20020502, end: 20020515
  20. INSULIN HUMAN (GENTICAL RECOMBINATION) [Concomitant]
     Route: 050
     Dates: start: 20020502, end: 20020515
  21. INSULIN HUMAN (GENTICAL RECOMBINATION) [Concomitant]
     Route: 050
     Dates: start: 20020516, end: 20020608
  22. PENTAMIDINE [Concomitant]
     Indication: INFECTION PROPHYLAXIS
     Route: 042
     Dates: start: 20020401, end: 20020805
  23. COAGULATION FACTOR VIII [Concomitant]
     Indication: FACTOR VIII DEFICIENCY
     Route: 042
     Dates: start: 20020401, end: 20030624
  24. CLARITHROMYCIN [Concomitant]
     Indication: ANTIBACTERIAL PROPHYLAXIS
     Route: 048
     Dates: start: 20020530, end: 20021125
  25. KETOTIFEN FUMARATE [Concomitant]
     Indication: INSOMNIA
     Route: 048
     Dates: start: 20021125, end: 20040125

REACTIONS (22)
  - BLOOD ALKALINE PHOSPHATASE INCREASED [None]
  - BLOOD LACTIC ACID INCREASED [None]
  - BLOOD TRIGLYCERIDES INCREASED [None]
  - CARDIOMEGALY [None]
  - DIABETES MELLITUS [None]
  - EYE DISORDER [None]
  - FAT REDISTRIBUTION [None]
  - GAMMA-GLUTAMYLTRANSFERASE INCREASED [None]
  - HAEMARTHROSIS [None]
  - IMPETIGO [None]
  - INSOMNIA [None]
  - LIP EROSION [None]
  - MASS [None]
  - MUSCLE HAEMORRHAGE [None]
  - MUSCULAR WEAKNESS [None]
  - OESOPHAGEAL CANDIDIASIS [None]
  - PRURITUS [None]
  - PYREXIA [None]
  - RASH [None]
  - STAPHYLOCOCCAL INFECTION [None]
  - TACHYCARDIA [None]
  - WEIGHT DECREASED [None]
